FAERS Safety Report 9289978 (Version 2)
Quarter: 2013Q2

REPORT INFORMATION
  Report Type: Spontaneous
  Country: US (occurrence: US)
  Receive Date: 20130515
  Receipt Date: 20130521
  Transmission Date: 20140414
  Serious: Yes (Other)
  Sender: FDA-Public Use
  Company Number: US-BAYER-2013-058492

PATIENT
  Age: 73 Year
  Sex: Male

DRUGS (6)
  1. MOXIFLOXACIN ORAL [Suspect]
     Indication: LUNG ABSCESS
  2. ERGOCALCIFEROL [Concomitant]
  3. GABAPENTIN [Concomitant]
  4. ACIDOPHILUS [Concomitant]
  5. LOPERAMIDE [Concomitant]
  6. AZITHROMYCIN [Concomitant]
     Indication: PNEUMONIA

REACTIONS (2)
  - Pathogen resistance [None]
  - Treatment failure [None]
